FAERS Safety Report 5518227-4 (Version None)
Quarter: 2007Q4

REPORT INFORMATION
  Report Type: 
  Country: None (occurrence: None)
  Receive Date: 20071115
  Receipt Date: 20071108
  Transmission Date: 20080405
  Serious: Yes (Hospitalization)
  Sender: FDA-Public Use
  Company Number: US-GENENTECH-250784

PATIENT
  Sex: Female
  Weight: 71 kg

DRUGS (12)
  1. BLINDED BEVACIZUMAB [Suspect]
     Indication: METASTATIC MALIGNANT MELANOMA
     Dosage: 1065 UNK, Q3W
     Route: 042
     Dates: start: 20071017
  2. CARBOPLATIN [Suspect]
     Indication: METASTATIC MALIGNANT MELANOMA
     Dosage: 1065 UNK, Q3W
     Route: 042
     Dates: start: 20071017
  3. BLINDED PACLITAXEL [Suspect]
     Indication: METASTATIC MALIGNANT MELANOMA
     Dosage: 1065 UNK, Q3W
     Route: 042
     Dates: start: 20071017
  4. BLINDED PLACEBO [Suspect]
     Indication: METASTATIC MALIGNANT MELANOMA
     Dosage: 1065 UNK, Q3W
     Route: 042
     Dates: start: 20071017
  5. CARBOPLATIN [Suspect]
     Indication: METASTATIC MALIGNANT MELANOMA
  6. PACLITAXEL [Suspect]
     Indication: METASTATIC MALIGNANT MELANOMA
  7. OXYCODONE HCL [Concomitant]
     Indication: DRUG USE FOR UNKNOWN INDICATION
  8. LASIX [Concomitant]
     Indication: DRUG USE FOR UNKNOWN INDICATION
     Dosage: 20 MG, UNK
  9. GLIPIZIDE [Concomitant]
     Indication: DRUG USE FOR UNKNOWN INDICATION
     Dosage: 5 MG, UNK
  10. SIMVASTATIN [Concomitant]
     Indication: DRUG USE FOR UNKNOWN INDICATION
     Dosage: 40 MG, UNK
  11. METFORMIN HCL [Concomitant]
     Indication: DRUG USE FOR UNKNOWN INDICATION
     Dosage: 500 MG, UNK
  12. LEVOTHYROXINE SODIUM [Concomitant]
     Indication: DRUG USE FOR UNKNOWN INDICATION
     Dosage: 88 NG, UNK

REACTIONS (1)
  - ANAEMIA [None]
